FAERS Safety Report 4780902-7 (Version None)
Quarter: 2005Q3

REPORT INFORMATION
  Report Type: 
  Country: None (occurrence: None)
  Receive Date: 20050927
  Receipt Date: 20050927
  Transmission Date: 20060218
  Serious: Yes (Hospitalization)
  Sender: FDA-Public Use
  Company Number: None

PATIENT
  Sex: Male

DRUGS (6)
  1. RITUXAN [Suspect]
     Indication: MANTLE CELL LYMPHOMA
     Dosage: 37.5 MG/M2 IV
     Route: 042
     Dates: start: 20050215, end: 20050906
  2. THALIDOMIDE 100 MG PO QD [Suspect]
     Indication: MANTLE CELL LYMPHOMA
     Dosage: 100 MG PO QD
     Route: 048
     Dates: start: 20050215, end: 20050906
  3. ETOPOSIDE [Suspect]
     Indication: MANTLE CELL LYMPHOMA
     Dosage: 50 MG PO QD
     Route: 048
     Dates: start: 20050215, end: 20050906
  4. PREDNISONE [Suspect]
     Indication: MANTLE CELL LYMPHOMA
     Dosage: 50 MG PO QD
     Route: 048
     Dates: start: 20050215, end: 20050906
  5. PROCARBAZINE 50 MG PO QD [Suspect]
     Indication: MANTLE CELL LYMPHOMA
     Dosage: 50 MG PO QD
     Route: 048
     Dates: start: 20050215, end: 20050906
  6. CYTOXAN [Suspect]
     Indication: MANTLE CELL LYMPHOMA
     Dosage: 50 MG
     Dates: start: 20050215, end: 20050906

REACTIONS (1)
  - HYPOXIA [None]
